FAERS Safety Report 5921587-3 (Version None)
Quarter: 2008Q3

REPORT INFORMATION
  Report Type: 
  Country: None (occurrence: None)
  Receive Date: 20080909
  Receipt Date: 20080513
  Transmission Date: 20090109
  Serious: Yes (Death)
  Sender: FDA-Public Use
  Company Number: 163-20785-08040396

PATIENT
  Age: 77 Year
  Sex: Female

DRUGS (2)
  1. THALOMID [Suspect]
     Indication: MYELOFIBROSIS
     Dosage: 50 MG, 1 IN 1 D, ORAL
     Route: 048
     Dates: start: 20080228
  2. THALOMID [Suspect]
     Indication: POLYCYTHAEMIA VERA
     Dosage: 50 MG, 1 IN 1 D, ORAL
     Route: 048
     Dates: start: 20080228

REACTIONS (3)
  - BONE MARROW FAILURE [None]
  - MYELOFIBROSIS [None]
  - NEOPLASM PROGRESSION [None]
